FAERS Safety Report 9816431 (Version 1)
Quarter: 2014Q1

REPORT INFORMATION
  Report Type: Spontaneous
  Country: GB (occurrence: GB)
  Receive Date: 20140114
  Receipt Date: 20140114
  Transmission Date: 20141002
  Serious: Yes (Hospitalization)
  Sender: FDA-Public Use
  Company Number: GB-TEVA-454316ISR

PATIENT
  Age: 60 Year
  Sex: Male

DRUGS (2)
  1. LANSOPRAZOLE [Suspect]
     Dosage: 30 MILLIGRAM DAILY;
     Route: 048
     Dates: start: 1993, end: 20131217
  2. EVEROLIMUS [Suspect]
     Indication: RENAL CANCER
     Dosage: 5 MILLIGRAM DAILY;
     Route: 048
     Dates: start: 20130101

REACTIONS (3)
  - Tetany [Recovering/Resolving]
  - Hypomagnesaemia [Recovering/Resolving]
  - Paraesthesia [Unknown]
